FAERS Safety Report 19178970 (Version 1)
Quarter: 2021Q2

REPORT INFORMATION
  Report Type: Spontaneous
  Country: US (occurrence: US)
  Receive Date: 20210426
  Receipt Date: 20210426
  Transmission Date: 20210717
  Serious: Yes (Death)
  Sender: FDA-Public Use
  Company Number: US-PFIZER INC-2020186824

PATIENT
  Age: 74 Year
  Sex: Female

DRUGS (2)
  1. IBRANCE [Suspect]
     Active Substance: PALBOCICLIB
     Dosage: 250 MG, CYCLIC (28 DAYS ON AND THEN SEVEN DAYS OFF)
  2. IBRANCE [Suspect]
     Active Substance: PALBOCICLIB
     Dosage: 125 MG

REACTIONS (2)
  - Death [Fatal]
  - Off label use [Unknown]
